FAERS Safety Report 17199937 (Version 2)
Quarter: 2020Q2

REPORT INFORMATION
  Report Type: Spontaneous
  Country: US (occurrence: US)
  Receive Date: 20191226
  Receipt Date: 20200424
  Transmission Date: 20200713
  Serious: Yes (Other)
  Sender: FDA-Public Use
  Company Number: US-ASTRAZENECA-2019SF84186

PATIENT
  Age: 45 Year
  Sex: Female

DRUGS (89)
  1. NEXIUM [Suspect]
     Active Substance: ESOMEPRAZOLE MAGNESIUM
     Indication: GASTROOESOPHAGEAL REFLUX DISEASE
     Dosage: 40.0MG UNKNOWN
     Route: 048
     Dates: start: 2009
  2. PRILOSEC [Suspect]
     Active Substance: OMEPRAZOLE MAGNESIUM
     Indication: GASTROOESOPHAGEAL REFLUX DISEASE
     Dosage: GENERIC20.0MG UNKNOWN
     Route: 048
     Dates: start: 20080923
  3. PROTONIX [Suspect]
     Active Substance: PANTOPRAZOLE SODIUM
     Indication: GASTROOESOPHAGEAL REFLUX DISEASE
     Dosage: GENERIC30.0MG UNKNOWN
     Route: 048
     Dates: start: 20090223
  4. HYDROCHLOROTHIAZIDE. [Concomitant]
     Active Substance: HYDROCHLOROTHIAZIDE
     Indication: HYPERTENSION
     Dates: start: 2009
  5. SERTRALINE [Concomitant]
     Active Substance: SERTRALINE HYDROCHLORIDE
     Indication: DEPRESSION
     Dates: start: 2009, end: 2012
  6. LISINOPRIL. [Concomitant]
     Active Substance: LISINOPRIL
     Indication: HYPERTENSION
     Dates: start: 2009
  7. CARISOPRODOL. [Concomitant]
     Active Substance: CARISOPRODOL
  8. AMITRIPTYLINE [Concomitant]
     Active Substance: AMITRIPTYLINE
  9. RABEPRAZOLE [Concomitant]
     Active Substance: RABEPRAZOLE
  10. PHENAZOPYRIDINE. [Concomitant]
     Active Substance: PHENAZOPYRIDINE
  11. ONDANSETRON [Concomitant]
     Active Substance: ONDANSETRON
  12. CYMBALTA [Concomitant]
     Active Substance: DULOXETINE HYDROCHLORIDE
  13. NEXIUM [Suspect]
     Active Substance: ESOMEPRAZOLE MAGNESIUM
     Indication: GASTROOESOPHAGEAL REFLUX DISEASE
     Route: 048
     Dates: start: 2000, end: 2018
  14. PREVACID [Suspect]
     Active Substance: LANSOPRAZOLE
     Indication: GASTROOESOPHAGEAL REFLUX DISEASE
     Dosage: 30.0MG UNKNOWN
     Route: 065
     Dates: start: 2000
  15. CEPHALEXIN. [Concomitant]
     Active Substance: CEPHALEXIN
  16. NITROFURANTOIN. [Concomitant]
     Active Substance: NITROFURANTOIN
  17. FLUOXETINE [Concomitant]
     Active Substance: FLUOXETINE HYDROCHLORIDE
  18. ALPRAZOLAM. [Concomitant]
     Active Substance: ALPRAZOLAM
  19. FERROUS SULFATE. [Concomitant]
     Active Substance: FERROUS SULFATE
  20. LAMOTRIGINE. [Concomitant]
     Active Substance: LAMOTRIGINE
  21. VENLAFAXINE [Concomitant]
     Active Substance: VENLAFAXINE HYDROCHLORIDE
  22. DIPHENHYDRAMINE. [Concomitant]
     Active Substance: DIPHENHYDRAMINE
  23. BENZONATATE. [Concomitant]
     Active Substance: BENZONATATE
  24. ESTRADIOL. [Concomitant]
     Active Substance: ESTRADIOL
  25. PROTONIX [Suspect]
     Active Substance: PANTOPRAZOLE SODIUM
     Indication: GASTROOESOPHAGEAL REFLUX DISEASE
     Dosage: 40.0MG UNKNOWN
     Route: 065
     Dates: start: 2009, end: 2012
  26. NORTRIPTYLINE [Concomitant]
     Active Substance: NORTRIPTYLINE
  27. CRESTOR [Concomitant]
     Active Substance: ROSUVASTATIN CALCIUM
  28. MOVIPREP [Concomitant]
     Active Substance: ASCORBIC ACID\POLYETHYLENE GLYCOL 3350\POTASSIUM CHLORIDE\SODIUM ASCORBATE\SODIUM CHLORIDE\SODIUM SULFATE
  29. METRONIDAZOLE. [Concomitant]
     Active Substance: METRONIDAZOLE
  30. CITALOPRAM [Concomitant]
     Active Substance: CITALOPRAM HYDROBROMIDE
  31. TRIAMCINOLONE [Concomitant]
     Active Substance: TRIAMCINOLONE
  32. TRAMADOL. [Concomitant]
     Active Substance: TRAMADOL
  33. CIMETIDINE [Concomitant]
     Active Substance: CIMETIDINE
  34. LYRICA [Concomitant]
     Active Substance: PREGABALIN
  35. MIRTAZAPINE. [Concomitant]
     Active Substance: MIRTAZAPINE
  36. VITAMIN D [Concomitant]
     Active Substance: VITAMIN D NOS
  37. NABUMETONE. [Concomitant]
     Active Substance: NABUMETONE
  38. PIROXICAM. [Concomitant]
     Active Substance: PIROXICAM
  39. PRILOSEC OTC [Suspect]
     Active Substance: OMEPRAZOLE MAGNESIUM
     Indication: GASTROOESOPHAGEAL REFLUX DISEASE
     Dosage: 20.0MG UNKNOWN
     Route: 048
     Dates: start: 2009
  40. PROTONIX [Suspect]
     Active Substance: PANTOPRAZOLE SODIUM
     Indication: GASTROOESOPHAGEAL REFLUX DISEASE
     Dosage: GENERIC40.0MG UNKNOWN
     Route: 065
  41. GABAPENTIN. [Concomitant]
     Active Substance: GABAPENTIN
  42. PAROXETINE. [Concomitant]
     Active Substance: PAROXETINE
  43. BUPROPION. [Concomitant]
     Active Substance: BUPROPION
  44. ERYTHROMYCIN. [Concomitant]
     Active Substance: ERYTHROMYCIN
  45. SULFADIAZINE. [Concomitant]
     Active Substance: SULFADIAZINE
  46. PRILOSEC [Suspect]
     Active Substance: OMEPRAZOLE MAGNESIUM
     Indication: GASTROOESOPHAGEAL REFLUX DISEASE
     Dosage: 20.0MG UNKNOWN
     Route: 048
     Dates: start: 2005, end: 2008
  47. PREVACID [Suspect]
     Active Substance: LANSOPRAZOLE
     Indication: GASTROOESOPHAGEAL REFLUX DISEASE
     Route: 065
     Dates: start: 2000, end: 2018
  48. ZANTAC [Concomitant]
     Active Substance: RANITIDINE HYDROCHLORIDE
     Dates: start: 1994, end: 2004
  49. PEPTO-BISMOL [Concomitant]
     Active Substance: BISMUTH SUBSALICYLATE
  50. FLUVIRIN NOS [Concomitant]
     Active Substance: INFLUENZA VIRUS VACCINE
  51. CIPROFLOXACIN. [Concomitant]
     Active Substance: CIPROFLOXACIN
  52. METHYLPREDNISOLONE. [Concomitant]
     Active Substance: METHYLPREDNISOLONE
  53. CYCLOBENZAPRINE. [Concomitant]
     Active Substance: CYCLOBENZAPRINE
  54. HYDROCODONE/ APAP [Concomitant]
     Active Substance: ACETAMINOPHEN\HYDROCODONE
  55. CLINDAMYCIN. [Concomitant]
     Active Substance: CLINDAMYCIN
  56. TUSSIN [Concomitant]
     Active Substance: GUAIFENESIN
  57. BACLOFEN. [Concomitant]
     Active Substance: BACLOFEN
  58. PRILOSEC [Suspect]
     Active Substance: OMEPRAZOLE MAGNESIUM
     Indication: GASTROOESOPHAGEAL REFLUX DISEASE
     Route: 048
     Dates: start: 2000, end: 2018
  59. ACIPHEX [Suspect]
     Active Substance: RABEPRAZOLE SODIUM
     Indication: GASTROOESOPHAGEAL REFLUX DISEASE
     Dosage: 20.0MG UNKNOWN
     Route: 065
     Dates: start: 2007
  60. LOVASTATIN. [Concomitant]
     Active Substance: LOVASTATIN
     Indication: BLOOD CHOLESTEROL INCREASED
     Dates: start: 2009
  61. RANITIDINE. [Concomitant]
     Active Substance: RANITIDINE
     Dates: start: 2018, end: 2019
  62. TUMS [Concomitant]
     Active Substance: CALCIUM CARBONATE
  63. ACETAMINOPHEN W/ CODEINE [Concomitant]
  64. BETAMETHASONE. [Concomitant]
     Active Substance: BETAMETHASONE
  65. ALLER-EASE [Concomitant]
  66. TEMAZEPAM. [Concomitant]
     Active Substance: TEMAZEPAM
  67. METOPROLOL SUCCINATE. [Concomitant]
     Active Substance: METOPROLOL SUCCINATE
  68. PRILOSEC [Suspect]
     Active Substance: OMEPRAZOLE MAGNESIUM
     Indication: GASTROOESOPHAGEAL REFLUX DISEASE
     Dosage: 20.0MG UNKNOWN
     Route: 065
  69. PROTONIX [Suspect]
     Active Substance: PANTOPRAZOLE SODIUM
     Indication: GASTROOESOPHAGEAL REFLUX DISEASE
     Route: 065
     Dates: start: 2000, end: 2018
  70. SIMVASTATIN. [Concomitant]
     Active Substance: SIMVASTATIN
     Indication: BLOOD CHOLESTEROL INCREASED
     Dates: start: 2009
  71. ACETAMINOPHEN. [Concomitant]
     Active Substance: ACETAMINOPHEN
     Indication: HEADACHE
  72. ROLAIDS [Concomitant]
     Active Substance: CALCIUM CARBONATE\MAGNESIUM HYDROXIDE
  73. OXYBUTNIN [Concomitant]
  74. MUCINEX [Concomitant]
     Active Substance: GUAIFENESIN
  75. SUCRALFATE. [Concomitant]
     Active Substance: SUCRALFATE
  76. OXYBUTYNIN CHLORIDE. [Concomitant]
     Active Substance: OXYBUTYNIN CHLORIDE
  77. PREDNISONE. [Concomitant]
     Active Substance: PREDNISONE
  78. PENICILLIN [Concomitant]
     Active Substance: PENICILLIN
  79. TAPE [Concomitant]
     Active Substance: DEVICE
  80. PRILOSEC OTC [Suspect]
     Active Substance: OMEPRAZOLE MAGNESIUM
     Indication: GASTROOESOPHAGEAL REFLUX DISEASE
     Route: 048
     Dates: start: 2000, end: 2018
  81. HYDROCODONE [Concomitant]
     Active Substance: HYDROCODONE
     Indication: PAIN
     Dates: start: 2009, end: 2010
  82. DICLOFENAC [Concomitant]
     Active Substance: DICLOFENAC
  83. OXYCODONE/ APAP [Concomitant]
     Active Substance: ACETAMINOPHEN\OXYCODONE HYDROCHLORIDE
  84. DOXYCYCLINE HYCLATE. [Concomitant]
     Active Substance: DOXYCYCLINE HYCLATE
  85. IBUPROFEN. [Concomitant]
     Active Substance: IBUPROFEN
  86. HYOSCYAMINE SULFATE. [Concomitant]
     Active Substance: HYOSCYAMINE SULFATE
  87. OSELTAMIVIR PHOSPHATE. [Concomitant]
     Active Substance: OSELTAMIVIR PHOSPHATE
  88. QUETIAPINE FUMARATE. [Concomitant]
     Active Substance: QUETIAPINE FUMARATE
  89. MORPHINE [Concomitant]
     Active Substance: MORPHINE

REACTIONS (4)
  - Chronic kidney disease [Not Recovered/Not Resolved]
  - Renal failure [Unknown]
  - Gastrooesophageal reflux disease [Unknown]
  - End stage renal disease [Unknown]

NARRATIVE: CASE EVENT DATE: 2006
